FAERS Safety Report 4552299-9 (Version None)
Quarter: 2005Q1

REPORT INFORMATION
  Report Type: 
  Country: None (occurrence: None)
  Receive Date: 20050114
  Receipt Date: 20031030
  Transmission Date: 20050727
  Serious: No
  Sender: FDA-Public Use
  Company Number: US-GLAXOSMITHKLINE-A0432261A

PATIENT
  Age: 31 Year
  Sex: Male
  Weight: 51.4 kg

DRUGS (7)
  1. IMITREX [Suspect]
     Indication: DRUG USE FOR UNKNOWN INDICATION
     Dosage: 6MG PER DAY
     Route: 042
  2. DEMEROL [Concomitant]
     Indication: HEADACHE
     Dosage: 50MG AS REQUIRED
     Route: 042
     Dates: start: 20031029, end: 20031031
  3. NIMOTOP [Concomitant]
     Dosage: 60MG AS REQUIRED
     Route: 048
     Dates: start: 20031020, end: 20031101
  4. NORVASC [Concomitant]
     Indication: HYPERTENSION
     Route: 065
  5. HYDROCHLOROTHIAZIDE [Concomitant]
     Indication: HYPERTENSION
     Route: 065
  6. NEXIUM [Concomitant]
     Route: 065
  7. ZETIA [Concomitant]
     Route: 065

REACTIONS (4)
  - MEDICATION ERROR [None]
  - MIGRAINE [None]
  - NAUSEA [None]
  - VOMITING [None]
